FAERS Safety Report 15404051 (Version 1)
Quarter: 2018Q3

REPORT INFORMATION
  Report Type: Spontaneous
  Country: US (occurrence: US)
  Receive Date: 20180919
  Receipt Date: 20180919
  Transmission Date: 20181010
  Serious: No
  Sender: FDA-Public Use
  Company Number: US-AVADEL SPECIALTY PHARMACEUTICALS, LLC-2018AVA00098

PATIENT
  Age: 79 Year
  Sex: Male
  Weight: 72.11 kg

DRUGS (1)
  1. NOCTIVA [Suspect]
     Active Substance: DESMOPRESSIN ACETATE
     Indication: NOCTURIA
     Dosage: 0.83 ?G, 1X/DAY 30 MINUTES BEFORE BEDTIME
     Route: 045
     Dates: start: 20180608, end: 201806

REACTIONS (3)
  - Sneezing [Recovered/Resolved]
  - Drug effect variable [Recovered/Resolved]
  - Rhinalgia [Recovered/Resolved]

NARRATIVE: CASE EVENT DATE: 20180608
